FAERS Safety Report 4955187-9 (Version None)
Quarter: 2006Q1

REPORT INFORMATION
  Report Type: 
  Country: None (occurrence: None)
  Receive Date: 20060328
  Receipt Date: 20060317
  Transmission Date: 20060701
  Serious: Yes (Death, Hospitalization, Other)
  Sender: FDA-Public Use
  Company Number: JP-BRISTOL-MYERS SQUIBB COMPANY-13325311

PATIENT
  Age: 52 Year
  Sex: Female

DRUGS (3)
  1. ENDOXAN [Suspect]
     Dates: start: 20051108
  2. AREDIA [Concomitant]
     Dates: start: 20051107, end: 20060104
  3. EPIRUBICIN [Concomitant]
     Dates: start: 20051108

REACTIONS (3)
  - ANAEMIA [None]
  - BREAST CANCER [None]
  - OXYGEN SATURATION DECREASED [None]
